FAERS Safety Report 5168894-2 (Version None)
Quarter: 2006Q4

REPORT INFORMATION
  Report Type: 
  Country: None (occurrence: None)
  Receive Date: 20061205
  Receipt Date: 20061205
  Transmission Date: 20070319
  Serious: Yes (Death)
  Sender: FDA-Public Use
  Company Number: None

PATIENT
  Sex: Female

DRUGS (1)
  1. COUMADIN [Suspect]
     Indication: ATRIAL FIBRILLATION
     Dosage: 2.5MG ALT W/ 5MG DAILY

REACTIONS (5)
  - CEREBRAL HAEMORRHAGE [None]
  - DRUG TOXICITY [None]
  - HYPERTENSION [None]
  - TACHYCARDIA [None]
  - THERAPY NON-RESPONDER [None]
